FAERS Safety Report 6488258-9 (Version None)
Quarter: 2009Q4

REPORT INFORMATION
  Report Type: 
  Country: None (occurrence: None)
  Receive Date: 20091210
  Receipt Date: 20091126
  Transmission Date: 20100525
  Serious: Yes (Hospitalization)
  Sender: FDA-Public Use
  Company Number: DE-MYLANLABS-2009S1020532

PATIENT
  Age: 79 Year
  Sex: Female

DRUGS (12)
  1. FUROSEMID [Suspect]
     Indication: DEMENTIA ALZHEIMER'S TYPE
     Dosage: DAILY DOSE: 40 MG MILLIGRAM(S) EVERY HOUR
     Route: 048
     Dates: start: 20071112
  2. LISIHEXAL /00894001/ [Suspect]
     Indication: DEMENTIA ALZHEIMER'S TYPE
     Dosage: DAILY DOSE: 10 MG MILLIGRAM(S) EVERY DAY
     Route: 048
  3. DOMINAL [Suspect]
     Indication: DEMENTIA ALZHEIMER'S TYPE
     Dosage: DAILY DOSE: 80 MG MILLIGRAM(S) EVERY DAY
     Route: 048
     Dates: start: 20071107
  4. SEROQUEL [Suspect]
     Indication: DEMENTIA ALZHEIMER'S TYPE
     Dosage: DAILY DOSE: 12.5 MG MILLIGRAM(S) EVERY DAY
     Route: 048
     Dates: start: 20071120
  5. SEROQUEL [Suspect]
     Dosage: DAILY DOSE: 25 MG MILLIGRAM(S) EVERY DAY
     Route: 048
     Dates: start: 20071121
  6. SEROQUEL [Suspect]
     Dosage: DAILY DOSE: 37.5 MG MILLIGRAM(S) EVERY HOUR
     Route: 048
     Dates: start: 20071122, end: 20071123
  7. SEROQUEL [Suspect]
     Dosage: DAILY DOSE: 62.5 MG MILLIGRAM(S) EVERY DAY
     Route: 048
     Dates: start: 20071124
  8. SEROQUEL [Suspect]
     Dosage: DAILY DOSE: 75 MG MILLIGRAM(S) EVERY DAY
     Route: 048
     Dates: start: 20071125, end: 20071126
  9. SEROQUEL [Suspect]
     Dosage: DAILY DOSE: 100 MG MILLIGRAM(S) EVERY DAY
     Route: 048
  10. SEROQUEL [Suspect]
     Dosage: DAILY DOSE: 125 MG MILLIGRAM(S) EVERY DAY
     Route: 048
     Dates: start: 20071128, end: 20071129
  11. SEROQUEL [Suspect]
     Dosage: DAILY DOSE: 75 MG MILLIGRAM(S) EVERY DAY
     Route: 048
     Dates: start: 20071130
  12. LANITOP [Concomitant]
     Indication: DEMENTIA ALZHEIMER'S TYPE
     Dosage: DAILY DOSE: 0.1 MG MILLIGRAM(S) EVERY DAY
     Route: 048

REACTIONS (1)
  - CIRCULATORY COLLAPSE [None]
